FAERS Safety Report 25727895 (Version 1)
Quarter: 2025Q3

REPORT INFORMATION
  Report Type: Spontaneous
  Country: US (occurrence: None)
  Receive Date: 20250826
  Receipt Date: 20250826
  Transmission Date: 20251021
  Serious: Yes (Hospitalization)
  Sender: FDA-CTU
  Company Number: None

PATIENT
  Sex: Male

DRUGS (11)
  1. ORENCIA [Suspect]
     Active Substance: ABATACEPT
     Indication: Product prescribing issue
     Dosage: INJECT 125 MG UNDER THE SKIN (SUBCUTANEOUS INJECTION) ONCE A WEEK.
     Route: 058
     Dates: start: 20221222
  2. AMITRIPTYLIN TAB 25MG [Concomitant]
  3. ARAVA TAB 10MG [Concomitant]
  4. CIMETIDINE TAB 800MG [Concomitant]
  5. CLOBETASOL DIN 0.05% [Concomitant]
  6. DEXAMETHASONE PHOSPHATE [Concomitant]
     Active Substance: DEXAMETHASONE PHOSPHATE
  7. DULOXETINE CAP 20MG [Concomitant]
  8. FLUOROURACIL [Concomitant]
     Active Substance: FLUOROURACIL
  9. HYDROXYCHLOROQUINE [Concomitant]
     Active Substance: HYDROXYCHLOROQUINE
  10. KENALOG-40 INJ 40MG/ML [Concomitant]
  11. KETOROLAC [Concomitant]
     Active Substance: KETOROLAC TROMETHAMINE

REACTIONS (5)
  - Drug ineffective [None]
  - Pain [None]
  - Illness [None]
  - Intentional dose omission [None]
  - Coronary arterial stent insertion [None]
